FAERS Safety Report 11345751 (Version 1)
Quarter: 2015Q3

REPORT INFORMATION
  Report Type: Spontaneous
  Country: US (occurrence: US)
  Receive Date: 20150806
  Receipt Date: 20150806
  Transmission Date: 20151125
  Serious: No
  Sender: FDA-Public Use
  Company Number: ALCN2015US004498

PATIENT
  Sex: Female

DRUGS (4)
  1. ALLEREX                            /00378301/ [Concomitant]
     Indication: DRY EYE
  2. SYSTANE (HYPROMELLOSE 2910 (4000 MPA.S)) [Concomitant]
     Active Substance: HYPROMELLOSE 2910 (4000 MPA.S)
     Indication: DRY EYE
  3. SYSTANE BALANCE [Suspect]
     Active Substance: PROPYLENE GLYCOL
     Indication: DRY EYE
     Dosage: UNK
  4. THERATEARS [Concomitant]
     Active Substance: CARBOXYMETHYLCELLULOSE SODIUM
     Indication: DRY EYE

REACTIONS (3)
  - Eye infection [Recovered/Resolved]
  - Superficial injury of eye [Recovered/Resolved]
  - Product dropper issue [Recovered/Resolved]

NARRATIVE: CASE EVENT DATE: 201507
